FAERS Safety Report 10579168 (Version 1)
Quarter: 2014Q4

REPORT INFORMATION
  Report Type: Spontaneous
  Country: IN (occurrence: IN)
  Receive Date: 20141112
  Receipt Date: 20141112
  Transmission Date: 20150529
  Serious: Yes (Hospitalization, Other)
  Sender: FDA-Public Use
  Company Number: IN-ACTAVIS-2014-23928

PATIENT
  Age: 4 Year
  Sex: Female

DRUGS (1)
  1. PHENYTOIN (AMALLC) [Suspect]
     Active Substance: PHENYTOIN
     Indication: PRODUCT USED FOR UNKNOWN INDICATION
     Dosage: UNK
     Route: 048

REACTIONS (10)
  - Generalised tonic-clonic seizure [Recovered/Resolved]
  - Ataxia [Recovered/Resolved]
  - Dysphagia [Recovered/Resolved]
  - Loss of consciousness [Recovered/Resolved]
  - Dysarthria [Recovered/Resolved with Sequelae]
  - Nystagmus [Recovered/Resolved]
  - Hypotonia [Recovered/Resolved]
  - Toxicity to various agents [Recovered/Resolved]
  - Irritability [Recovered/Resolved]
  - Vomiting [Recovered/Resolved]
